FAERS Safety Report 5910079-3 (Version None)
Quarter: 2008Q4

REPORT INFORMATION
  Report Type: 
  Country: None (occurrence: None)
  Receive Date: 20081007
  Receipt Date: 20070904
  Transmission Date: 20090506
  Serious: No
  Sender: FDA-Public Use
  Company Number: US-ASTRAZENECA-2007UW20835

PATIENT
  Age: 65 Year
  Sex: Female

DRUGS (4)
  1. ARIMIDEX [Suspect]
     Indication: ADENOCARCINOMA
     Route: 048
  2. MEGACE [Concomitant]
  3. FENTANYL TRANSDERMAL SYSTEM [Concomitant]
     Dosage: PATCH
  4. ANTI-NAUSEA MEDICATION [Concomitant]

REACTIONS (4)
  - BACK PAIN [None]
  - HEPATIC FAILURE [None]
  - URINARY TRACT INFECTION [None]
  - URINE OUTPUT [None]
